FAERS Safety Report 21996373 (Version 1)
Quarter: 2023Q1

REPORT INFORMATION
  Report Type: Spontaneous
  Country: IR (occurrence: IR)
  Receive Date: 20230215
  Receipt Date: 20230215
  Transmission Date: 20230418
  Serious: Yes (Death, Other)
  Sender: FDA-Public Use
  Company Number: IR-SA-2022SA419906

PATIENT
  Age: 2 Year
  Sex: Male

DRUGS (1)
  1. MYOZYME [Suspect]
     Active Substance: ALGLUCOSIDASE ALFA
     Indication: Glycogen storage disease type II
     Dosage: 20 MG/KG
     Route: 042
     Dates: start: 20220908, end: 20220908

REACTIONS (3)
  - Death [Fatal]
  - Pyrexia [Unknown]
  - Lethargy [Unknown]

NARRATIVE: CASE EVENT DATE: 20220917
